FAERS Safety Report 13094511 (Version 2)
Quarter: 2017Q1

REPORT INFORMATION
  Report Type: Spontaneous
  Country: US (occurrence: US)
  Receive Date: 20170106
  Receipt Date: 20170201
  Transmission Date: 20170428
  Serious: Yes (Life-Threatening, Other)
  Sender: FDA-Public Use
  Company Number: US-TEVA-727327USA

PATIENT
  Sex: Female

DRUGS (6)
  1. OMEGA-3-ACID ETHYL ESTERS. [Suspect]
     Active Substance: OMEGA-3-ACID ETHYL ESTERS
     Indication: PRODUCT USED FOR UNKNOWN INDICATION
     Route: 065
  2. MORPHINE [Concomitant]
     Active Substance: MORPHINE
  3. KLONOPIN [Concomitant]
     Active Substance: CLONAZEPAM
  4. OMEGA-3-ACID ETHYL ESTERS CAPSULES, USP ONE GRAM CAPSULE [Suspect]
     Active Substance: OMEGA-3-ACID ETHYL ESTERS
     Indication: BLOOD TRIGLYCERIDES ABNORMAL
     Dates: start: 201604
  5. LOVAZA [Suspect]
     Active Substance: OMEGA-3-ACID ETHYL ESTERS
     Indication: HYPERTRIGLYCERIDAEMIA
     Dosage: 2 DOSAGE FORMS DAILY;
     Route: 048
     Dates: start: 201611, end: 20161208
  6. KLONOPIN [Concomitant]
     Active Substance: CLONAZEPAM

REACTIONS (13)
  - Fatigue [Unknown]
  - Abasia [Unknown]
  - Blood pressure abnormal [Unknown]
  - Stress [Unknown]
  - Pain in extremity [Not Recovered/Not Resolved]
  - Cholecystectomy [Unknown]
  - Malaise [Unknown]
  - Pain [Unknown]
  - Surgery [Unknown]
  - Dysuria [Unknown]
  - Perforation bile duct [Unknown]
  - Peritonitis [Unknown]
  - Flank pain [Unknown]
